FAERS Safety Report 12241545 (Version 6)
Quarter: 2016Q3

REPORT INFORMATION
  Report Type: Spontaneous
  Country: GB (occurrence: GB)
  Receive Date: 20160406
  Receipt Date: 20160705
  Transmission Date: 20161109
  Serious: Yes (Other)
  Sender: FDA-Public Use
  Company Number: GB-SUN PHARMACEUTICAL INDUSTRIES LTD-2016RR-114227

PATIENT
  Age: 22 Year
  Sex: Female
  Weight: 64.1 kg

DRUGS (7)
  1. FLUCONAZOLE. [Suspect]
     Active Substance: FLUCONAZOLE
     Indication: VULVOVAGINAL CANDIDIASIS
     Dosage: 1 DF, 1 EVERY 72 HOURS FOR 3 DOSES THEN 1 WEEKLY
     Route: 048
     Dates: start: 20160105, end: 20160113
  2. LAMOTRIGINE. [Concomitant]
     Active Substance: LAMOTRIGINE
     Indication: EPILEPSY
     Dosage: 100 MG, BID
     Route: 048
     Dates: start: 20141016
  3. LIDOCAINE. [Concomitant]
     Active Substance: LIDOCAINE
     Indication: VULVOVAGINAL CANDIDIASIS
     Route: 065
  4. FLUCONAZOLE. [Suspect]
     Active Substance: FLUCONAZOLE
     Dosage: 150 MG, 2/WEEK (TOTAL AMOUNT WAS 450 MG)
     Route: 048
     Dates: start: 20160105
  5. GINO-DAKTARIN [Concomitant]
     Indication: VULVOVAGINAL CANDIDIASIS
     Route: 065
  6. FLUCLOXACILLIN [Concomitant]
     Active Substance: FLUCLOXACILLIN
     Indication: BACTERIAL INFECTION
     Dosage: 1 G, QID
     Route: 048
     Dates: start: 20160109, end: 20160113
  7. CLOTRIMAZOLE. [Concomitant]
     Active Substance: CLOTRIMAZOLE
     Indication: VULVOVAGINAL CANDIDIASIS
     Dosage: UNK
     Route: 061
     Dates: start: 20160105

REACTIONS (5)
  - Dizziness [Recovered/Resolved]
  - Headache [Recovered/Resolved]
  - Seizure [Recovered/Resolved]
  - Fall [Recovered/Resolved]
  - Vomiting projectile [Recovered/Resolved]

NARRATIVE: CASE EVENT DATE: 201601
